FAERS Safety Report 7464203-4 (Version None)
Quarter: 2011Q2

REPORT INFORMATION
  Report Type: 
  Country: None (occurrence: None)
  Receive Date: 20110506
  Receipt Date: 20110429
  Transmission Date: 20111010
  Serious: Yes (Hospitalization)
  Sender: FDA-Public Use
  Company Number: PL-GENENTECH-317971

PATIENT
  Sex: Female

DRUGS (9)
  1. PREDNISONE [Suspect]
     Indication: B-CELL LYMPHOMA
     Dosage: 69 MG, UNK
     Route: 048
     Dates: start: 20100304, end: 20100308
  2. VINCRISTINE [Suspect]
     Indication: B-CELL LYMPHOMA
     Dosage: 2 MG, UNK
     Route: 042
     Dates: start: 20100129, end: 20100202
  3. ENALAPRIL [Concomitant]
     Indication: PRODUCT USED FOR UNKNOWN INDICATION
     Dosage: UNK
  4. TOLTERODINE [Concomitant]
     Indication: PRODUCT USED FOR UNKNOWN INDICATION
     Dosage: UNK
  5. ALLOPURINOL [Concomitant]
     Indication: PRODUCT USED FOR UNKNOWN INDICATION
     Dosage: UNK
  6. RITUXAN [Suspect]
     Indication: B-CELL LYMPHOMA
     Dosage: 640 MG, UNK
     Route: 042
     Dates: start: 20091119, end: 20091123
  7. CYCLOPHOSPHAMIDE [Suspect]
     Indication: B-CELL LYMPHOMA
     Dosage: 1285 MG, UNK
     Route: 042
     Dates: start: 20091216, end: 20091220
  8. DOXORUBICIN HCL [Suspect]
     Indication: B-CELL LYMPHOMA
     Dosage: 50 MG, UNK
     Route: 042
     Dates: start: 20100108, end: 20100112
  9. INSULIN [Concomitant]
     Indication: PRODUCT USED FOR UNKNOWN INDICATION
     Dosage: UNK

REACTIONS (3)
  - FEBRILE NEUTROPENIA [None]
  - LOSS OF CONSCIOUSNESS [None]
  - ELECTROLYTE IMBALANCE [None]
